FAERS Safety Report 15734987 (Version 1)
Quarter: 2018Q4

REPORT INFORMATION
  Report Type: Report from Study
  Country: CA (occurrence: CA)
  Receive Date: 20181218
  Receipt Date: 20181218
  Transmission Date: 20190205
  Serious: No
  Sender: FDA-Public Use
  Company Number: CA-JNJFOC-20181219664

PATIENT
  Sex: Female
  Weight: 98.6 kg

DRUGS (2)
  1. AZATHIOPRINE. [Suspect]
     Active Substance: AZATHIOPRINE
     Indication: RESPIRATORY DISORDER
     Route: 065
  2. STELARA [Suspect]
     Active Substance: USTEKINUMAB
     Indication: CROHN^S DISEASE
     Dosage: STRENGTH = 90 MG
     Route: 058
     Dates: start: 20171124

REACTIONS (3)
  - Hepatic enzyme increased [Recovered/Resolved]
  - Respiratory disorder [Unknown]
  - Diarrhoea [Recovered/Resolved]
